FAERS Safety Report 24552709 (Version 1)
Quarter: 2024Q4

REPORT INFORMATION
  Report Type: Spontaneous
  Country: FR (occurrence: FR)
  Receive Date: 20241027
  Receipt Date: 20241027
  Transmission Date: 20250115
  Serious: Yes (Hospitalization)
  Sender: AUROBINDO
  Company Number: FR-AFSSAPS-MA2024001477

PATIENT
  Age: 74 Year
  Sex: Female

DRUGS (1)
  1. MIRTAZAPINE [Suspect]
     Active Substance: MIRTAZAPINE
     Indication: Depressed mood
     Dosage: 15 MILLIGRAM, ONCE A DAY
     Route: 048
     Dates: start: 20240902, end: 20240909

REACTIONS (2)
  - Rash morbilliform [Recovering/Resolving]
  - Pruritus [Recovering/Resolving]

NARRATIVE: CASE EVENT DATE: 20240909
